FAERS Safety Report 9107670 (Version 4)
Quarter: 2015Q3

REPORT INFORMATION
  Report Type: Spontaneous
  Country: US (occurrence: US)
  Receive Date: 20130221
  Receipt Date: 20150807
  Transmission Date: 20151125
  Serious: Yes (Hospitalization, Disabling, Other)
  Sender: FDA-Public Use
  Company Number: US-009507513-1302USA007241

PATIENT
  Sex: Male

DRUGS (1)
  1. PROPECIA [Suspect]
     Active Substance: FINASTERIDE
     Indication: ANDROGENETIC ALOPECIA
     Dosage: 1 MG, UNKNOWN
     Route: 048
     Dates: start: 1999, end: 2000

REACTIONS (18)
  - Cognitive disorder [Not Recovered/Not Resolved]
  - Alopecia [Unknown]
  - Hypertension [Unknown]
  - Irritability [Unknown]
  - Emotional disorder [Unknown]
  - Semen analysis abnormal [Not Recovered/Not Resolved]
  - Erectile dysfunction [Not Recovered/Not Resolved]
  - Agitation [Unknown]
  - Blood testosterone free decreased [Unknown]
  - Libido decreased [Not Recovered/Not Resolved]
  - Depression [Not Recovered/Not Resolved]
  - Chest pain [Unknown]
  - Sedation [Unknown]
  - Chest pain [Unknown]
  - Anxiety [Not Recovered/Not Resolved]
  - Semen volume decreased [Not Recovered/Not Resolved]
  - Depression [Unknown]
  - Suicidal ideation [Unknown]

NARRATIVE: CASE EVENT DATE: 1999
